FAERS Safety Report 9254464 (Version 1)
Quarter: 2013Q2

REPORT INFORMATION
  Report Type: Spontaneous
  Country: CO (occurrence: CO)
  Receive Date: 20130425
  Receipt Date: 20130425
  Transmission Date: 20140414
  Serious: Yes (Death, Life-Threatening)
  Sender: FDA-Public Use
  Company Number: CO-BRISTOL-MYERS SQUIBB COMPANY-18765727

PATIENT
  Age: 65 Year
  Sex: Male
  Weight: 112 kg

DRUGS (1)
  1. YERVOY [Suspect]
     Dosage: 2ND CYCLE:11MAR2013?3RD CYCLE ON 08APR2013?7 VIALS
     Dates: start: 20130214

REACTIONS (1)
  - Pseudomonas infection [Fatal]
